FAERS Safety Report 15160378 (Version 1)
Quarter: 2018Q3

REPORT INFORMATION
  Report Type: Spontaneous
  Country: CN (occurrence: CN)
  Receive Date: 20180718
  Receipt Date: 20180718
  Transmission Date: 20181010
  Serious: Yes (Other)
  Sender: FDA-Public Use
  Company Number: CN-JNJFOC-20180715446

PATIENT

DRUGS (1)
  1. TOPIRAMATE. [Suspect]
     Active Substance: TOPIRAMATE
     Indication: INFANTILE SPASMS
     Dosage: 3.54 +/? 1.80 MG /KG / DAY
     Route: 048

REACTIONS (3)
  - Product use issue [Unknown]
  - Psychomotor skills impaired [Unknown]
  - Off label use [Unknown]
